FAERS Safety Report 8085531-8 (Version None)
Quarter: 2012Q1

REPORT INFORMATION
  Report Type: 
  Country: None (occurrence: None)
  Receive Date: 20120128
  Receipt Date: 20110608
  Transmission Date: 20120608
  Serious: No
  Sender: FDA-Public Use
  Company Number: US-ABBOTT-11P-163-0712264-00

PATIENT
  Sex: Female
  Weight: 54.934 kg

DRUGS (16)
  1. HYDROCHLOROTHIAZIDE [Concomitant]
     Indication: HYPERTENSION
  2. CYMBALTA [Concomitant]
     Indication: ANXIETY
  3. ASCORBIC ACID [Concomitant]
     Indication: VITAMIN SUPPLEMENTATION
  4. VITAMIN D [Concomitant]
     Indication: PRODUCT USED FOR UNKNOWN INDICATION
  5. HUMIRA [Suspect]
     Indication: PSORIATIC ARTHROPATHY
  6. OMEPRAZOLE [Concomitant]
     Indication: GASTROOESOPHAGEAL REFLUX DISEASE
  7. PENTASA [Concomitant]
     Indication: CROHN'S DISEASE
  8. FISH OIL [Concomitant]
     Indication: MEDICAL DIET
     Dosage: OTC
  9. CYMBALTA [Concomitant]
     Indication: DEPRESSION
  10. CALCIUM [Concomitant]
     Indication: MINERAL SUPPLEMENTATION
  11. HUMIRA [Suspect]
     Indication: CROHN'S DISEASE
     Dates: start: 20110215
  12. IMURAN [Concomitant]
     Indication: CROHN'S DISEASE
  13. ZOCOR [Concomitant]
     Indication: BLOOD CHOLESTEROL INCREASED
  14. VITAMIN B COMPLEX CAP [Concomitant]
     Indication: VITAMIN SUPPLEMENTATION
     Dosage: DAILY
  15. XANAX [Concomitant]
     Indication: ANXIETY
     Dosage: AS NEEDED
  16. TOPROL-XL [Concomitant]
     Indication: HYPERTENSION

REACTIONS (5)
  - INCORRECT DOSE ADMINISTERED [None]
  - DEVICE MALFUNCTION [None]
  - INJECTION SITE PAIN [None]
  - INJECTION SITE HAEMORRHAGE [None]
  - WRONG TECHNIQUE IN DRUG USAGE PROCESS [None]
